FAERS Safety Report 23625770 (Version 1)
Quarter: 2024Q1

REPORT INFORMATION
  Report Type: Report from Study
  Country: US (occurrence: US)
  Receive Date: 20240313
  Receipt Date: 20240313
  Transmission Date: 20240410
  Serious: Yes (Other)
  Sender: FDA-Public Use
  Company Number: US-JNJFOC-20240320485

PATIENT
  Age: 74 Year
  Sex: Female

DRUGS (4)
  1. SPRAVATO [Suspect]
     Active Substance: ESKETAMINE
     Indication: Depression
     Dosage: 56 MG, 6 TOTAL DOSES
     Dates: start: 20231120, end: 20231208
  2. SPRAVATO [Suspect]
     Active Substance: ESKETAMINE
     Dosage: 14 MG, 1 TOTAL DOSES
     Dates: start: 20231212, end: 20231212
  3. SPRAVATO [Suspect]
     Active Substance: ESKETAMINE
     Dosage: 56 MG, 1 TOTAL DOSES
     Dates: start: 20231215, end: 20231215
  4. SPRAVATO [Suspect]
     Active Substance: ESKETAMINE
     Dosage: 84 MG, 5 TOTAL DOSES
     Dates: start: 20231222, end: 20240119

REACTIONS (1)
  - Ovarian cancer [Unknown]
